FAERS Safety Report 21552441 (Version 1)
Quarter: 2022Q4

REPORT INFORMATION
  Report Type: Spontaneous
  Country: CN (occurrence: CN)
  Receive Date: 20221104
  Receipt Date: 20221104
  Transmission Date: 20230113
  Serious: Yes (Hospitalization)
  Sender: FDA-Public Use
  Company Number: CN-BAYER-2022A150790

PATIENT
  Age: 72 Year
  Sex: Male
  Weight: 67.5 kg

DRUGS (2)
  1. RIVAROXABAN [Interacting]
     Active Substance: RIVAROXABAN
     Indication: Thrombosis prophylaxis
     Dosage: 15 MG, QD
     Route: 048
     Dates: start: 20220209, end: 20221013
  2. PLAVIX [Interacting]
     Active Substance: CLOPIDOGREL BISULFATE
     Indication: Thrombosis prophylaxis
     Dosage: 75 MG, QD
     Route: 048
     Dates: start: 20220209, end: 20221013

REACTIONS (10)
  - Upper gastrointestinal haemorrhage [Recovered/Resolved]
  - Melaena [Recovered/Resolved]
  - Blood loss anaemia [Recovering/Resolving]
  - Decreased appetite [Recovering/Resolving]
  - Asthenia [Recovering/Resolving]
  - Dizziness [Recovering/Resolving]
  - Labelled drug-drug interaction medication error [Unknown]
  - Contraindicated product administered [Unknown]
  - Inappropriate schedule of product administration [Unknown]
  - Product prescribing issue [Unknown]

NARRATIVE: CASE EVENT DATE: 20220209
